FAERS Safety Report 16091276 (Version 2)
Quarter: 2019Q2

REPORT INFORMATION
  Report Type: Spontaneous
  Country: PT (occurrence: PT)
  Receive Date: 20190319
  Receipt Date: 20190402
  Transmission Date: 20190711
  Serious: Yes (Hospitalization, Other)
  Sender: FDA-Public Use
  Company Number: PT-MYLANLABS-2019M1024782

PATIENT
  Age: 55 Year
  Sex: Male

DRUGS (4)
  1. NAPROXEN. [Suspect]
     Active Substance: NAPROXEN
     Indication: ARTHRALGIA
     Dosage: UNK
     Dates: start: 201712
  2. NAPROXEN. [Suspect]
     Active Substance: NAPROXEN
     Dosage: IN SOS
     Route: 065
  3. DICLOFENAC [Suspect]
     Active Substance: DICLOFENAC
     Indication: ARTHRALGIA
     Dosage: UNK
     Dates: start: 201712
  4. DICLOFENAC [Suspect]
     Active Substance: DICLOFENAC
     Dosage: IN SOS
     Route: 065

REACTIONS (1)
  - Nephrotic syndrome [Unknown]
